FAERS Safety Report 16283310 (Version 3)
Quarter: 2020Q1

REPORT INFORMATION
  Report Type: Spontaneous
  Country: US (occurrence: US)
  Receive Date: 20190507
  Receipt Date: 20200114
  Transmission Date: 20200409
  Serious: Yes (Death, Hospitalization, Other)
  Sender: FDA-Public Use
  Company Number: US-ASTRAZENECA-2018SF22158

PATIENT
  Age: 23135 Day
  Sex: Male
  Weight: 105.7 kg

DRUGS (40)
  1. CEFUROXIME. [Concomitant]
     Active Substance: CEFUROXIME
     Indication: INFECTION
     Dates: start: 2011
  2. KLOR-CON [Concomitant]
     Active Substance: POTASSIUM CHLORIDE
     Indication: HYPOKALAEMIA
     Dates: start: 2005, end: 2010
  3. PRAVACHOL [Concomitant]
     Active Substance: PRAVASTATIN SODIUM
     Indication: CORONARY ARTERY DISEASE
     Dates: start: 2004, end: 2005
  4. PREDNISOLONE ACETATE. [Concomitant]
     Active Substance: PREDNISOLONE ACETATE
     Indication: EYE INFLAMMATION
     Dates: start: 2007
  5. GAVISCON [Concomitant]
     Active Substance: ALUMINUM HYDROXIDE\MAGNESIUM CARBONATE
  6. PACERONE [Concomitant]
     Active Substance: AMIODARONE HYDROCHLORIDE
     Indication: ATRIAL FIBRILLATION
     Dates: start: 2005, end: 2006
  7. NEXIUM [Suspect]
     Active Substance: ESOMEPRAZOLE MAGNESIUM
     Indication: GASTROOESOPHAGEAL REFLUX DISEASE
     Route: 048
     Dates: start: 2005, end: 2011
  8. PROTONIX [Suspect]
     Active Substance: PANTOPRAZOLE SODIUM
     Indication: GASTROOESOPHAGEAL REFLUX DISEASE
     Route: 065
     Dates: start: 2011
  9. COREG [Concomitant]
     Active Substance: CARVEDILOL
     Indication: HYPERTENSION
     Dates: start: 2006, end: 2007
  10. ENALAPRIL [Concomitant]
     Active Substance: ENALAPRIL
     Indication: HYPERTENSION
     Dates: start: 2005, end: 2007
  11. FUROSEMIDE. [Concomitant]
     Active Substance: FUROSEMIDE
     Indication: CARDIAC FAILURE CONGESTIVE
     Dates: start: 2005, end: 2007
  12. NORVASC [Concomitant]
     Active Substance: AMLODIPINE BESYLATE
     Indication: HYPERTENSION
     Dates: start: 2005, end: 2011
  13. PROTONIX [Suspect]
     Active Substance: PANTOPRAZOLE SODIUM
     Indication: GASTROOESOPHAGEAL REFLUX DISEASE
     Route: 065
     Dates: start: 2005, end: 2011
  14. BIDIL [Concomitant]
     Active Substance: HYDRALAZINE HYDROCHLORIDE\ISOSORBIDE DINITRATE
     Indication: CARDIAC FAILURE CONGESTIVE
     Dates: start: 2005, end: 2010
  15. HYDROCODONE [Concomitant]
     Active Substance: HYDROCODONE
     Indication: ANALGESIC THERAPY
     Dates: start: 2005, end: 2011
  16. HYDROXYZINE [Concomitant]
     Active Substance: HYDROXYZINE HYDROCHLORIDE
     Indication: NAUSEA
     Dates: start: 2004, end: 2010
  17. PLETAL [Concomitant]
     Active Substance: CILOSTAZOL
     Indication: PERIPHERAL ARTERY ANEURYSM
     Dates: start: 2004
  18. DOCUSATE [Concomitant]
     Active Substance: DOCUSATE
     Indication: CONSTIPATION
     Dates: start: 2008
  19. NEXIUM [Suspect]
     Active Substance: ESOMEPRAZOLE MAGNESIUM
     Indication: GASTROOESOPHAGEAL REFLUX DISEASE
     Route: 048
     Dates: start: 2005, end: 2011
  20. JANUVIA [Concomitant]
     Active Substance: SITAGLIPTIN PHOSPHATE
     Indication: DIABETES MELLITUS
     Dates: start: 2000, end: 2011
  21. TORSEMIDE. [Concomitant]
     Active Substance: TORSEMIDE
     Indication: CARDIAC FAILURE CONGESTIVE
     Dates: start: 2005, end: 2010
  22. BENAZEPRIL [Concomitant]
     Active Substance: BENAZEPRIL HYDROCHLORIDE
     Indication: HYPERTENSION
     Dates: start: 2010
  23. DIOVAN [Concomitant]
     Active Substance: VALSARTAN
     Indication: HYPERTENSION
     Dates: start: 2004, end: 2005
  24. PLAVIX [Concomitant]
     Active Substance: CLOPIDOGREL BISULFATE
     Indication: PERIPHERAL ARTERY ANEURYSM
     Dates: start: 2005, end: 2007
  25. TEKTURNA [Concomitant]
     Active Substance: ALISKIREN HEMIFUMARATE
     Indication: HYPERTENSION
     Dates: start: 2007
  26. TERAZOSIN [Concomitant]
     Active Substance: TERAZOSIN HYDROCHLORIDE
     Indication: URINARY RETENTION
     Dates: start: 2008
  27. CILOSTAZOL. [Concomitant]
     Active Substance: CILOSTAZOL
     Indication: PERIPHERAL ARTERY ANEURYSM
     Dates: start: 2005
  28. AMLODIPINE [Concomitant]
     Active Substance: AMLODIPINE BESYLATE
     Indication: HYPERTENSION
     Dates: start: 2008, end: 2011
  29. LOTREL [Concomitant]
     Active Substance: AMLODIPINE BESYLATE\BENAZEPRIL HYDROCHLORIDE
     Indication: HYPERTENSION
     Dates: start: 2005, end: 2007
  30. SULFACETAMIDE. [Concomitant]
     Active Substance: SULFACETAMIDE
     Indication: INFECTION
     Dates: start: 2010
  31. ZOCOR [Concomitant]
     Active Substance: SIMVASTATIN
     Indication: HYPERTENSION
     Dates: start: 2008
  32. ASPIRIN. [Concomitant]
     Active Substance: ASPIRIN
     Indication: CARDIAC DISORDER
  33. AMIODARONE [Concomitant]
     Active Substance: AMIODARONE
     Indication: ATRIAL FIBRILLATION
     Dates: start: 2006, end: 2011
  34. AVALIDE [Concomitant]
     Active Substance: HYDROCHLOROTHIAZIDE\IRBESARTAN
     Indication: HYPERTENSION
     Dates: start: 2000
  35. AVANDIA [Concomitant]
     Active Substance: ROSIGLITAZONE MALEATE
     Indication: DIABETES MELLITUS
     Dates: start: 2000, end: 2007
  36. HYDROXYZINE [Concomitant]
     Active Substance: HYDROXYZINE HYDROCHLORIDE
     Indication: VOMITING
     Dates: start: 2004, end: 2010
  37. CARVEDILOL. [Concomitant]
     Active Substance: CARVEDILOL
     Indication: HYPERTENSION
     Dates: start: 2007, end: 2011
  38. CELEBREX [Concomitant]
     Active Substance: CELECOXIB
     Indication: ANALGESIC THERAPY
     Dates: start: 2000
  39. METOLAZONE. [Concomitant]
     Active Substance: METOLAZONE
     Indication: HYPERTENSION
     Dates: start: 2009, end: 2010
  40. CIPROFLOXACIN. [Concomitant]
     Active Substance: CIPROFLOXACIN
     Indication: INFECTION
     Dates: start: 2008

REACTIONS (6)
  - Sepsis [Fatal]
  - Chronic kidney disease [Unknown]
  - End stage renal disease [Unknown]
  - Pneumonia [Fatal]
  - Renal failure [Unknown]
  - Acute kidney injury [Unknown]

NARRATIVE: CASE EVENT DATE: 20090121
